FAERS Safety Report 6706719-1 (Version None)
Quarter: 2010Q2

REPORT INFORMATION
  Report Type: 
  Country: None (occurrence: None)
  Receive Date: 20100503
  Receipt Date: 20100420
  Transmission Date: 20101027
  Serious: Yes (Other)
  Sender: FDA-Public Use
  Company Number: US-ROCHE-700541

PATIENT
  Sex: Female
  Weight: 39.5 kg

DRUGS (1)
  1. CAPECITABINE [Suspect]
     Indication: BREAST CANCER
     Route: 048
     Dates: start: 20100217, end: 20100401

REACTIONS (1)
  - MALIGNANT NEOPLASM PROGRESSION [None]
